FAERS Safety Report 17965549 (Version 1)
Quarter: 2020Q3

REPORT INFORMATION
  Report Type: Spontaneous
  Country: US (occurrence: US)
  Receive Date: 20200701
  Receipt Date: 20200701
  Transmission Date: 20201103
  Serious: Yes (Other)
  Sender: FDA-Public Use
  Company Number: US-SUN PHARMACEUTICAL INDUSTRIES LTD-2020R1-251513

PATIENT
  Age: 39 Year
  Sex: Male

DRUGS (11)
  1. DEXAMETHASONE. [Suspect]
     Active Substance: DEXAMETHASONE
     Indication: HISTOPLASMOSIS
     Dosage: 6 MILLIGRAM, TID
     Route: 065
  2. PREDNISONE. [Suspect]
     Active Substance: PREDNISONE
     Indication: DISSEMINATED TUBERCULOSIS
     Dosage: 20 MILLIGRAM, BID
     Route: 065
  3. FLUCONAZOLE. [Suspect]
     Active Substance: FLUCONAZOLE
     Indication: HISTOPLASMOSIS
     Dosage: UNK
     Route: 065
  4. PREDNISONE. [Suspect]
     Active Substance: PREDNISONE
     Dosage: 7.5 MILLIGRAM, QD
     Route: 065
  5. ISONIAZID. [Suspect]
     Active Substance: ISONIAZID
     Indication: DISSEMINATED TUBERCULOSIS
     Dosage: UNK
     Route: 065
  6. DEXAMETHASONE. [Suspect]
     Active Substance: DEXAMETHASONE
     Dosage: 4 MILLIGRAM, TID
     Route: 065
  7. AMPHOTERICIN B. [Suspect]
     Active Substance: AMPHOTERICIN B
     Indication: HISTOPLASMOSIS
     Dosage: UNK
     Route: 065
  8. ETHAMBUTOL [Suspect]
     Active Substance: ETHAMBUTOL HYDROCHLORIDE
     Indication: DISSEMINATED TUBERCULOSIS
     Dosage: UNK
     Route: 065
  9. PYRAZINAMIDE. [Suspect]
     Active Substance: PYRAZINAMIDE
     Indication: DISSEMINATED TUBERCULOSIS
     Dosage: UNK
     Route: 065
  10. RIFAMPIN. [Suspect]
     Active Substance: RIFAMPIN
     Indication: DISSEMINATED TUBERCULOSIS
     Dosage: UNK
     Route: 042
  11. RIFAMPIN. [Suspect]
     Active Substance: RIFAMPIN
     Indication: DISSEMINATED TUBERCULOSIS
     Dosage: UNK
     Route: 048

REACTIONS (9)
  - Encephalitis [Unknown]
  - Fatigue [Unknown]
  - Seizure [Unknown]
  - Fall [Unknown]
  - Drug ineffective [Unknown]
  - Headache [Recovering/Resolving]
  - Uveitis [Unknown]
  - Mental status changes [Unknown]
  - Muscular weakness [Unknown]
